FAERS Safety Report 15109044 (Version 1)
Quarter: 2018Q3

REPORT INFORMATION
  Report Type: Spontaneous
  Country: US (occurrence: US)
  Receive Date: 20180705
  Receipt Date: 20180705
  Transmission Date: 20181010
  Serious: Yes (Hospitalization, Other)
  Sender: FDA-Public Use
  Company Number: US-CIPLA LTD.-2018US19592

PATIENT

DRUGS (1)
  1. GABAPENTIN. [Suspect]
     Active Substance: GABAPENTIN
     Dosage: 6000 MG, UNK, TWENTY 300 MG TABLETS IN TOTAL
     Route: 048

REACTIONS (9)
  - Intentional overdose [Unknown]
  - Agitation [Recovered/Resolved]
  - Hallucination [Recovered/Resolved]
  - Heart rate increased [Unknown]
  - Delirium [Recovered/Resolved]
  - Blood pressure increased [Unknown]
  - Paranoia [Recovered/Resolved]
  - Tachyphrenia [Recovered/Resolved]
  - Rhabdomyolysis [Unknown]
